FAERS Safety Report 9133354 (Version 7)
Quarter: 2013Q4

REPORT INFORMATION
  Report Type: Spontaneous
  Country: US (occurrence: US)
  Receive Date: 20130301
  Receipt Date: 20131114
  Transmission Date: 20140711
  Serious: Yes (Hospitalization, Other)
  Sender: FDA-Public Use
  Company Number: US-009507513-1302USA012169

PATIENT
  Sex: Female
  Weight: 94.33 kg

DRUGS (3)
  1. NUVARING [Suspect]
     Indication: CONTRACEPTION
     Dosage: UNK
     Route: 067
     Dates: start: 201109, end: 201202
  2. NUVARING [Suspect]
     Indication: MENORRHAGIA
  3. MICARDIS [Concomitant]
     Indication: HYPERTENSION
     Dosage: UNK
     Dates: start: 2011

REACTIONS (14)
  - Pulmonary embolism [Recovered/Resolved]
  - Abdominal hernia [Unknown]
  - Splenomegaly [Unknown]
  - Sacroiliitis [Unknown]
  - Infectious mononucleosis [Unknown]
  - Depression [Unknown]
  - Iron deficiency anaemia [Unknown]
  - Off label use [Unknown]
  - Hysteroscopy [Unknown]
  - Endometrial ablation [Unknown]
  - Mineral supplementation [Unknown]
  - Menorrhagia [Unknown]
  - Hypertension [Unknown]
  - Muscle spasms [Unknown]
